FAERS Safety Report 9733857 (Version 2)
Quarter: 2013Q4

REPORT INFORMATION
  Report Type: Spontaneous
  Country: IT (occurrence: IT)
  Receive Date: 20131205
  Receipt Date: 20131212
  Transmission Date: 20140711
  Serious: Yes (Hospitalization)
  Sender: FDA-Public Use
  Company Number: IT-BAXTER-2013BAX048347

PATIENT
  Age: 16 Year
  Sex: Male

DRUGS (2)
  1. HOLOXAN [Suspect]
     Indication: EWING^S SARCOMA
     Route: 042
     Dates: start: 20131111, end: 20131111
  2. UROMITEXAN [Suspect]
     Indication: EWING^S SARCOMA
     Route: 042
     Dates: start: 20131111, end: 20131111

REACTIONS (1)
  - Grand mal convulsion [Recovered/Resolved]
